FAERS Safety Report 19432327 (Version 1)
Quarter: 2021Q2

REPORT INFORMATION
  Report Type: Spontaneous
  Country: US (occurrence: US)
  Receive Date: 20210617
  Receipt Date: 20210617
  Transmission Date: 20210717
  Serious: No
  Sender: FDA-Public Use
  Company Number: US-CATALYST PHARMACEUTICALS, INC-2021CAT00226

PATIENT
  Age: 87 Year
  Sex: Female
  Weight: 46.71 kg

DRUGS (6)
  1. FIRDAPSE [Suspect]
     Active Substance: AMIFAMPRIDINE PHOSPHATE
     Dosage: 20 MG (2 TABLETS), 1X/DAY IN THE EVENING
     Route: 048
     Dates: start: 2021
  2. FIRDAPSE [Suspect]
     Active Substance: AMIFAMPRIDINE PHOSPHATE
     Dosage: 20 MG (2 TABLETS), 1X/DAY IN THE EVENING
     Route: 048
     Dates: end: 202103
  3. FIRDAPSE [Suspect]
     Active Substance: AMIFAMPRIDINE PHOSPHATE
     Dosage: 30 MG (3 TABLETS), 2X/DAY IN THE MORNING AND AT NOON
     Route: 048
     Dates: start: 2021
  4. ARMOUR THYROID [Concomitant]
     Active Substance: THYROID, PORCINE
  5. FIRDAPSE [Suspect]
     Active Substance: AMIFAMPRIDINE PHOSPHATE
     Indication: MYASTHENIC SYNDROME
     Dosage: 30 MG (3 TABLETS), 2X/DAY IN THE MORNING AND AT NOON
     Route: 048
     Dates: end: 202103
  6. CEPHALEXIN. [Concomitant]
     Active Substance: CEPHALEXIN

REACTIONS (2)
  - COVID-19 [Recovered/Resolved]
  - Product dose omission issue [Recovered/Resolved]

NARRATIVE: CASE EVENT DATE: 202103
